FAERS Safety Report 15884617 (Version 2)
Quarter: 2019Q1

REPORT INFORMATION
  Report Type: Spontaneous
  Country: US (occurrence: US)
  Receive Date: 20190129
  Receipt Date: 20190201
  Transmission Date: 20190417
  Serious: Yes (Hospitalization, Other)
  Sender: FDA-Public Use
  Company Number: US-PFIZER INC-2019036004

PATIENT
  Age: 66 Year
  Sex: Male

DRUGS (3)
  1. PREDNISONE. [Suspect]
     Active Substance: PREDNISONE
     Indication: SARCOIDOSIS
     Dosage: 5 MG, 1X/DAY
  2. PREDNISONE. [Suspect]
     Active Substance: PREDNISONE
     Dosage: 40 MG, 1X/DAY
  3. METHOTREXATE SODIUM. [Suspect]
     Active Substance: METHOTREXATE SODIUM
     Indication: SARCOIDOSIS
     Dosage: 15 MG, WEEKLY

REACTIONS (6)
  - Escherichia infection [Recovering/Resolving]
  - Herpes zoster [Recovering/Resolving]
  - Enterococcal infection [Recovering/Resolving]
  - Stenotrophomonas infection [Recovering/Resolving]
  - Cutaneous vasculitis [Recovering/Resolving]
  - Pseudomonas infection [Recovering/Resolving]
